FAERS Safety Report 8213243-6 (Version None)
Quarter: 2012Q1

REPORT INFORMATION
  Report Type: 
  Country: None (occurrence: None)
  Receive Date: 20120315
  Receipt Date: 20110622
  Transmission Date: 20120608
  Serious: No
  Sender: FDA-Public Use
  Company Number: US-ASTRAZENECA-2011SE38019

PATIENT
  Sex: Male

DRUGS (8)
  1. ZESTRIL [Concomitant]
  2. CHERATUSSIN AC [Concomitant]
  3. LOFIBRA [Concomitant]
  4. PRINIVIL [Concomitant]
  5. ZOCOR [Concomitant]
  6. GLUCOPHAGE [Concomitant]
  7. TOPROL-XL [Suspect]
     Route: 048
  8. NOVOLIN N [Concomitant]

REACTIONS (4)
  - DIABETES MELLITUS [None]
  - HYPERTRIGLYCERIDAEMIA [None]
  - HYPERLIPIDAEMIA [None]
  - MYALGIA [None]
